FAERS Safety Report 4284096-6 (Version None)
Quarter: 2004Q1

REPORT INFORMATION
  Report Type: 
  Country: None (occurrence: None)
  Receive Date: 20040130
  Receipt Date: 20040112
  Transmission Date: 20041129
  Serious: Yes (Hospitalization)
  Sender: FDA-Public Use
  Company Number: USA030948539

PATIENT
  Age: 47 Year
  Sex: Female
  Weight: 94 kg

DRUGS (17)
  1. FORTEO [Suspect]
     Indication: OSTEOPOROSIS
     Dosage: 20 MCG/DAY
     Dates: start: 20030701
  2. AMARYL [Concomitant]
  3. ACIPHEX [Concomitant]
  4. KLOR-CON [Concomitant]
  5. KLONOPIN [Concomitant]
  6. SYNTHROID [Concomitant]
  7. VIOXX [Concomitant]
  8. NEURONTIN [Concomitant]
  9. PAXIL [Concomitant]
  10. THORAZINE [Concomitant]
  11. BENADRYL [Concomitant]
  12. LOMOTIL [Concomitant]
  13. IMODIUM [Concomitant]
  14. AMBIEN [Concomitant]
  15. SINEMET [Concomitant]
  16. FOSAMAX [Concomitant]
  17. ROBINUL (GLYCOPYRRONIUM BROMIDE) [Concomitant]

REACTIONS (9)
  - BONE INFECTION [None]
  - BONE PAIN [None]
  - CATHETER RELATED COMPLICATION [None]
  - CENTRAL LINE INFECTION [None]
  - DIARRHOEA [None]
  - FEELING ABNORMAL [None]
  - GASTROENTERITIS VIRAL [None]
  - INFLUENZA [None]
  - INJECTION SITE MASS [None]
